FAERS Safety Report 4487456-3 (Version None)
Quarter: 2004Q4

REPORT INFORMATION
  Report Type: 
  Country: None (occurrence: None)
  Receive Date: 20041027
  Receipt Date: 20041019
  Transmission Date: 20050328
  Serious: Yes (Hospitalization, Other)
  Sender: FDA-Public Use
  Company Number: BR-MERCK-0410BRA00424

PATIENT

DRUGS (4)
  1. VIOXX [Suspect]
     Indication: MUSCULOSKELETAL PAIN
     Route: 048
     Dates: start: 20040101, end: 20040901
  2. ADIPHENINE HYDROCHLORIDE AND DIPYRONE AND PROMETHAZINE [Concomitant]
     Indication: PAIN
     Route: 048
     Dates: start: 20040817
  3. PROPATYL NITRATE [Concomitant]
     Indication: CARDIOVASCULAR DISORDER
     Route: 048
     Dates: start: 19990101
  4. ASPIRIN [Concomitant]
     Indication: CARDIOVASCULAR DISORDER
     Route: 048
     Dates: start: 19990101

REACTIONS (4)
  - BLOOD PRESSURE ABNORMAL [None]
  - FATIGUE [None]
  - MYOCARDIAL INFARCTION [None]
  - OEDEMA PERIPHERAL [None]
